FAERS Safety Report 25269580 (Version 4)
Quarter: 2025Q2

REPORT INFORMATION
  Report Type: Spontaneous
  Country: US (occurrence: US)
  Receive Date: 20250505
  Receipt Date: 20250612
  Transmission Date: 20250717
  Serious: Yes (Other)
  Sender: PURDUE
  Company Number: US-PURDUE PHARMA-USA-2025-0317250

PATIENT
  Sex: Male

DRUGS (1)
  1. OXYCODONE HYDROCHLORIDE [Suspect]
     Active Substance: OXYCODONE HYDROCHLORIDE
     Indication: Pain
     Route: 048

REACTIONS (12)
  - Drug dependence [Unknown]
  - Affective disorder [Unknown]
  - Tension [Unknown]
  - Hot flush [Unknown]
  - Illness [Unknown]
  - Dehydration [Unknown]
  - Pain [Unknown]
  - Nausea [Unknown]
  - Tremor [Unknown]
  - Headache [Unknown]
  - Abdominal pain upper [Unknown]
  - Inadequate analgesia [Unknown]
